FAERS Safety Report 12493250 (Version 1)
Quarter: 2016Q2

REPORT INFORMATION
  Report Type: Spontaneous
  Country: US (occurrence: US)
  Receive Date: 20160623
  Receipt Date: 20160623
  Transmission Date: 20160815
  Serious: Yes (Other)
  Sender: FDA-Public Use
  Company Number: US-BAYER-2016-096221

PATIENT
  Age: 18 Year
  Sex: Female
  Weight: 104.31 kg

DRUGS (2)
  1. AFRIN ORIGINAL [Suspect]
     Active Substance: OXYMETAZOLINE HYDROCHLORIDE
     Indication: NASAL CONGESTION
     Dosage: 1-2 DF, QD SINCE SHE WAS 18
     Route: 045
  2. AFRIN NO DRIP ORIGINAL PUMP MIST [Suspect]
     Active Substance: OXYMETAZOLINE HYDROCHLORIDE
     Indication: NASAL CONGESTION
     Dosage: UNK
     Dates: start: 2006, end: 2006

REACTIONS (2)
  - Product use issue [None]
  - Upper airway obstruction [None]

NARRATIVE: CASE EVENT DATE: 1965
